FAERS Safety Report 15760467 (Version 1)
Quarter: 2018Q4

REPORT INFORMATION
  Report Type: Spontaneous
  Country: FI (occurrence: FI)
  Receive Date: 20181226
  Receipt Date: 20181226
  Transmission Date: 20190205
  Serious: Yes (Other)
  Sender: FDA-Public Use
  Company Number: FI-AMGEN-FINSP2018181879

PATIENT
  Age: 48 Year
  Sex: Female

DRUGS (3)
  1. FUROSEMIDE. [Concomitant]
     Active Substance: FUROSEMIDE
     Dosage: UNK
     Dates: start: 2006
  2. ZOLEDRONIC ACID [Concomitant]
     Active Substance: ZOLEDRONIC ACID
     Indication: METASTASES TO BONE
     Dosage: 4 MG, QMO
     Route: 042
     Dates: start: 2006, end: 200811
  3. MIMPARA [Suspect]
     Active Substance: CINACALCET HYDROCHLORIDE
     Indication: HYPERCALCAEMIA
     Dosage: 30 MG, BID
     Route: 065
     Dates: start: 200608, end: 2007

REACTIONS (4)
  - Osteolysis [Recovered/Resolved]
  - Metastases to the mediastinum [Recovered/Resolved]
  - Off label use [Unknown]
  - Parathyroid tumour malignant [Recovered/Resolved]

NARRATIVE: CASE EVENT DATE: 2006
